FAERS Safety Report 5064699-1 (Version None)
Quarter: 2006Q3

REPORT INFORMATION
  Report Type: 
  Country: None (occurrence: None)
  Receive Date: 20060728
  Receipt Date: 20060713
  Transmission Date: 20061208
  Serious: Yes (Hospitalization, Other)
  Sender: FDA-Public Use
  Company Number: FR-GLAXOSMITHKLINE-B0431687A

PATIENT
  Age: 79 Year
  Sex: Male
  Weight: 52 kg

DRUGS (9)
  1. ARIXTRA [Suspect]
     Dosage: 7.5MG PER DAY
     Route: 058
     Dates: start: 20060623, end: 20060701
  2. ASPIRIN [Concomitant]
     Dosage: 75MG PER DAY
     Route: 048
     Dates: start: 20060701
  3. QUINAPRIL HYDROCHLORIDE AND HYDROCHLOROTHIAZDE [Concomitant]
     Route: 065
  4. VASTEN [Concomitant]
     Route: 065
  5. KALEORID [Concomitant]
     Route: 065
  6. ESBERIVEN [Concomitant]
     Route: 065
  7. MOLSIDOMINE [Concomitant]
     Route: 065
  8. PROFENID [Concomitant]
     Route: 065
     Dates: end: 20060701
  9. CONTRAMAL [Concomitant]
     Route: 065

REACTIONS (4)
  - ANAEMIA [None]
  - GAIT DISTURBANCE [None]
  - MONOPARESIS [None]
  - MUSCLE HAEMORRHAGE [None]
